FAERS Safety Report 4620831-2 (Version None)
Quarter: 2005Q1

REPORT INFORMATION
  Report Type: 
  Country: None (occurrence: None)
  Receive Date: 20050325
  Receipt Date: 20050315
  Transmission Date: 20050727
  Serious: Yes (Other)
  Sender: FDA-Public Use
  Company Number: PHEH2005US02690

PATIENT
  Weight: 80.7403 kg

DRUGS (6)
  1. VISUDYNE [Suspect]
     Dosage: 10.5 MG DAILY IV
     Route: 042
     Dates: start: 20050113, end: 20050113
  2. TOPROL-XL [Concomitant]
  3. SYNTHROID [Concomitant]
  4. LESCOL XL [Concomitant]
  5. ACTONEL [Concomitant]
  6. DARVOCET-N 100 [Concomitant]

REACTIONS (12)
  - ARTHRALGIA [None]
  - BACK PAIN [None]
  - CHEST PAIN [None]
  - DYSPEPSIA [None]
  - DYSPNOEA [None]
  - ERUCTATION [None]
  - FLATULENCE [None]
  - INFUSION RELATED REACTION [None]
  - NAUSEA [None]
  - PAIN IN EXTREMITY [None]
  - PHARMACEUTICAL PRODUCT COMPLAINT [None]
  - SACRAL PAIN [None]
